FAERS Safety Report 5410937-2 (Version None)
Quarter: 2007Q3

REPORT INFORMATION
  Report Type: 
  Country: None (occurrence: None)
  Receive Date: 20070809
  Receipt Date: 20070809
  Transmission Date: 20080115
  Serious: Yes (Hospitalization)
  Sender: FDA-Public Use
  Company Number: None

PATIENT
  Age: 79 Year
  Sex: Female
  Weight: 60 kg

DRUGS (1)
  1. TICLID [Suspect]
     Indication: CORONARY ARTERIAL STENT INSERTION
     Dosage: 250 MG DAILY PO
     Route: 048
     Dates: start: 20070505, end: 20070614

REACTIONS (2)
  - PANCYTOPENIA [None]
  - PYREXIA [None]
